FAERS Safety Report 12437866 (Version 1)
Quarter: 2016Q2

REPORT INFORMATION
  Report Type: Spontaneous
  Country: JP (occurrence: JP)
  Receive Date: 20160606
  Receipt Date: 20160606
  Transmission Date: 20160815
  Serious: Yes (Other)
  Sender: FDA-Public Use
  Company Number: JP-PFIZER INC-2016278283

PATIENT

DRUGS (2)
  1. MICAMLO [Concomitant]
     Active Substance: AMLODIPINE BESYLATE\TELMISARTAN
     Route: 048
  2. SELARA [Suspect]
     Active Substance: EPLERENONE
     Route: 048

REACTIONS (1)
  - Blood potassium decreased [Unknown]
